FAERS Safety Report 5608433-2 (Version None)
Quarter: 2008Q1

REPORT INFORMATION
  Report Type: 
  Country: None (occurrence: None)
  Receive Date: 20080125
  Receipt Date: 20080114
  Transmission Date: 20080703
  Serious: Yes (Other)
  Sender: FDA-Public Use
  Company Number: 2008001358

PATIENT

DRUGS (1)
  1. VISINE A.C. (ZINC SULFATE, TETRYZOLINE) [Suspect]
     Dosage: TWO DROPS I EACH EYE, OPHTHALMIC
     Route: 047

REACTIONS (4)
  - EYE IRRITATION [None]
  - EYE SWELLING [None]
  - OCULAR HYPERAEMIA [None]
  - VISION BLURRED [None]
